FAERS Safety Report 18603438 (Version 11)
Quarter: 2022Q1

REPORT INFORMATION
  Report Type: Report from Study
  Country: US (occurrence: US)
  Receive Date: 20201210
  Receipt Date: 20220116
  Transmission Date: 20220423
  Serious: Yes (Other)
  Sender: FDA-Public Use
  Company Number: US-ABBVIE-20K-163-3678612-00

PATIENT
  Sex: Female
  Weight: 68.100 kg

DRUGS (13)
  1. HUMIRA [Suspect]
     Active Substance: ADALIMUMAB
     Indication: Crohn^s disease
     Route: 058
     Dates: start: 20201225
  2. HUMIRA [Suspect]
     Active Substance: ADALIMUMAB
     Route: 058
  3. HUMIRA [Suspect]
     Active Substance: ADALIMUMAB
     Route: 058
  4. HUMIRA [Suspect]
     Active Substance: ADALIMUMAB
     Indication: Crohn^s disease
     Route: 058
  5. PFIZER-BIONTECH COVID-19 VACCINE [Suspect]
     Active Substance: TOZINAMERAN
     Indication: COVID-19 immunisation
     Dosage: PFIZER/BIONTECH?FIRST DOSE
     Route: 030
     Dates: start: 20210414, end: 20210414
  6. PFIZER-BIONTECH COVID-19 VACCINE [Suspect]
     Active Substance: TOZINAMERAN
     Dosage: PFIZER/BIONTECH?SECOND DOSE
     Route: 030
     Dates: start: 20210504, end: 20210504
  7. PFIZER-BIONTECH COVID-19 VACCINE [Suspect]
     Active Substance: TOZINAMERAN
     Dosage: PFIZER/BIONTECH BOOSTER DOSE
     Route: 030
     Dates: start: 20211101, end: 20211101
  8. PREDNISONE [Suspect]
     Active Substance: PREDNISONE
     Indication: Product used for unknown indication
     Route: 065
  9. OXYCODONE [Concomitant]
     Active Substance: OXYCODONE
     Indication: Product used for unknown indication
  10. TRAMADOL [Concomitant]
     Active Substance: TRAMADOL
     Indication: Product used for unknown indication
  11. VITAMIN B [Concomitant]
     Active Substance: VITAMIN B
     Indication: Product used for unknown indication
  12. ZOFRAN [Concomitant]
     Active Substance: ONDANSETRON HYDROCHLORIDE
     Indication: Product used for unknown indication
  13. ASPIRIN [Concomitant]
     Active Substance: ASPIRIN
     Indication: Product used for unknown indication

REACTIONS (42)
  - Device physical property issue [Recovering/Resolving]
  - Complication associated with device [Recovering/Resolving]
  - Joint swelling [Recovering/Resolving]
  - Rotator cuff repair [Unknown]
  - Arthralgia [Recovering/Resolving]
  - Fear of disease [Not Recovered/Not Resolved]
  - Hypersomnia [Recovered/Resolved]
  - Gait disturbance [Recovering/Resolving]
  - Immunodeficiency [Recovering/Resolving]
  - Exposure to SARS-CoV-2 [Recovering/Resolving]
  - Dizziness [Recovered/Resolved]
  - Frequent bowel movements [Not Recovered/Not Resolved]
  - Product dispensing error [Recovering/Resolving]
  - Feeling abnormal [Unknown]
  - Weight increased [Unknown]
  - Anosmia [Recovering/Resolving]
  - Hypophagia [Recovering/Resolving]
  - Mobility decreased [Recovering/Resolving]
  - Gait disturbance [Unknown]
  - Dizziness [Unknown]
  - Joint warmth [Unknown]
  - Medical device site joint pain [Unknown]
  - Stress [Unknown]
  - White blood cell count increased [Unknown]
  - Arthropathy [Unknown]
  - Swelling [Recovering/Resolving]
  - Contusion [Recovering/Resolving]
  - Scar [Recovering/Resolving]
  - Ageusia [Recovering/Resolving]
  - Fall [Unknown]
  - Crohn^s disease [Not Recovered/Not Resolved]
  - Pain in extremity [Recovering/Resolving]
  - Nausea [Recovering/Resolving]
  - Tenderness [Recovering/Resolving]
  - Hypersensitivity [Not Recovered/Not Resolved]
  - Neuralgia [Recovering/Resolving]
  - Pain in extremity [Unknown]
  - Neuralgia [Unknown]
  - Neck pain [Unknown]
  - White blood cell count decreased [Unknown]
  - COVID-19 [Unknown]
  - COVID-19 [Unknown]

NARRATIVE: CASE EVENT DATE: 20210101
